FAERS Safety Report 4369762-6 (Version None)
Quarter: 2004Q2

REPORT INFORMATION
  Report Type: 
  Country: None (occurrence: None)
  Receive Date: 20040525
  Receipt Date: 20040513
  Transmission Date: 20050107
  Serious: Yes (Death, Hospitalization)
  Sender: FDA-Public Use
  Company Number: 04P-229-0260121-00

PATIENT
  Age: 56 Year
  Sex: Male

DRUGS (8)
  1. HUMIRA [Suspect]
     Indication: RHEUMATOID ARTHRITIS
     Dosage: 40  MG, 1 IN 2 WK, SUBCUTANEOUS
     Route: 058
     Dates: start: 20030301, end: 20040201
  2. METHOTREXATE SODIUM [Concomitant]
  3. CELECOXIB [Concomitant]
  4. SERENADE [Concomitant]
  5. FLUOXETINE HYDROCHLORIDE [Concomitant]
  6. CHLORPROMAZINE HCL [Concomitant]
  7. DEFLAZACORT [Concomitant]
  8. CARBAMAZEPINE [Concomitant]

REACTIONS (1)
  - ACUTE RESPIRATORY DISTRESS SYNDROME [None]
